FAERS Safety Report 6190229-7 (Version None)
Quarter: 2009Q2

REPORT INFORMATION
  Report Type: 
  Country: None (occurrence: None)
  Receive Date: 20090514
  Receipt Date: 20090505
  Transmission Date: 20091009
  Serious: Yes (Hospitalization)
  Sender: FDA-Public Use
  Company Number: IN-PFIZER INC-2009180939

PATIENT
  Age: 66 Year

DRUGS (13)
  1. BLINDED *PLACEBO [Suspect]
     Dosage: UNK
     Route: 048
     Dates: start: 20081105, end: 20090309
  2. BLINDED EPLERENONE [Suspect]
     Dosage: UNK
     Route: 048
     Dates: start: 20081105, end: 20090309
  3. ACETYLSALICYLIC ACID/CLOPIDOGREL [Concomitant]
     Dosage: 150 MG, 3X/DAY
     Route: 048
  4. ATORVASTATIN [Concomitant]
     Dosage: 10 MG, 1X/DAY
     Route: 048
  5. CORDARONE [Concomitant]
     Dosage: UNK
     Route: 048
  6. TRIMETAZIDINE [Concomitant]
     Dosage: 35 MG, 2X/DAY
     Route: 048
  7. MONOTRATE [Concomitant]
     Dosage: 20 MG, 2X/DAY
     Route: 048
  8. HYDRALAZINE [Concomitant]
     Dosage: 25 MG, 2X/DAY
     Route: 048
  9. IVABRADINE [Concomitant]
     Dosage: 5 MG, 2X/DAY
     Route: 048
  10. ALDACTONE [Concomitant]
     Dosage: 12.5 MG, 2X/DAY
     Route: 048
  11. LASIX [Concomitant]
     Dosage: 40 MG, 2X/DAY
     Route: 048
  12. SILDENAFIL CITRATE [Concomitant]
     Dosage: 25 MBQ, 2X/DAY
     Route: 048
  13. ALPRAX [Concomitant]
     Dosage: 0.25 MG, AS NEEDED
     Route: 048

REACTIONS (3)
  - ACUTE PULMONARY OEDEMA [None]
  - ATRIOVENTRICULAR BLOCK COMPLETE [None]
  - HYPERKALAEMIA [None]
